FAERS Safety Report 11324179 (Version 2)
Quarter: 2015Q3

REPORT INFORMATION
  Report Type: Spontaneous
  Country: CA (occurrence: CA)
  Receive Date: 20150730
  Receipt Date: 20150804
  Transmission Date: 20151125
  Serious: Yes (Hospitalization)
  Sender: FDA-Public Use
  Company Number: CHPA2015CA008893

PATIENT
  Age: 94 Year
  Sex: Male

DRUGS (1)
  1. GAS-X [Suspect]
     Active Substance: DIMETHICONE
     Indication: ABDOMINAL DISTENSION
     Dosage: 1 TO 4 DF, QD
     Route: 048
     Dates: start: 2015

REACTIONS (3)
  - Urine flow decreased [Not Recovered/Not Resolved]
  - Incorrect drug administration duration [Unknown]
  - Bladder dilatation [Recovered/Resolved]

NARRATIVE: CASE EVENT DATE: 201507
